FAERS Safety Report 11630432 (Version 2)
Quarter: 2016Q1

REPORT INFORMATION
  Report Type: Report from Study
  Country: EC (occurrence: EC)
  Receive Date: 20151014
  Receipt Date: 20160128
  Transmission Date: 20160525
  Serious: Yes (Hospitalization)
  Sender: FDA-Public Use
  Company Number: PHHY2015EC072259

PATIENT
  Age: 52 Year
  Sex: Female

DRUGS (5)
  1. TASIGNA [Suspect]
     Active Substance: NILOTINIB
     Dosage: 600 MG, QD
     Route: 048
     Dates: start: 20151230, end: 20160117
  2. TASIGNA [Suspect]
     Active Substance: NILOTINIB
     Indication: CHRONIC MYELOID LEUKAEMIA
     Dosage: 800 MG, QD
     Route: 048
     Dates: start: 20150610, end: 20150715
  3. TASIGNA [Suspect]
     Active Substance: NILOTINIB
     Dosage: 600 MG, QD
     Route: 048
     Dates: start: 20151005, end: 20151101
  4. TASIGNA [Suspect]
     Active Substance: NILOTINIB
     Dosage: 400 MG, QD
     Route: 048
     Dates: start: 20150716, end: 20151004
  5. TASIGNA [Suspect]
     Active Substance: NILOTINIB
     Dosage: 800 MG, QD
     Route: 048
     Dates: start: 20160118

REACTIONS (11)
  - Arthralgia [Unknown]
  - Vaginal discharge [Recovered/Resolved]
  - Vaginal ulceration [Recovering/Resolving]
  - Haemorrhoids [Recovering/Resolving]
  - Asthenia [Unknown]
  - Memory impairment [Unknown]
  - Somnolence [Unknown]
  - Pyrexia [Recovered/Resolved]
  - Ulcer [Recovered/Resolved with Sequelae]
  - Dizziness [Recovered/Resolved]
  - Chills [Recovered/Resolved]

NARRATIVE: CASE EVENT DATE: 20150610
